FAERS Safety Report 8255368-5 (Version None)
Quarter: 2012Q2

REPORT INFORMATION
  Report Type: 
  Country: None (occurrence: None)
  Receive Date: 20120403
  Receipt Date: 20120326
  Transmission Date: 20120825
  Serious: Yes (Other)
  Sender: FDA-Public Use
  Company Number: US-BAYER-2011-031975

PATIENT
  Age: 21 Year
  Sex: Female
  Weight: 95 kg

DRUGS (14)
  1. YAZ [Suspect]
     Indication: ACNE
     Dosage: UNK
     Dates: start: 20050501, end: 20070101
  2. LUNESTA [Concomitant]
     Dosage: 4 MG, QD
     Route: 048
  3. ACETAMINOPHEN AND HYDROCODONE BITARTRATE [Concomitant]
     Dosage: UNK
     Route: 048
  4. ZOLOFT [Concomitant]
     Dosage: UNK UNK, QD
     Route: 048
  5. ABILIFY [Concomitant]
  6. WELLBUTRIN [Concomitant]
     Indication: BIPOLAR DISORDER
     Dosage: UNK
     Route: 048
     Dates: start: 19990101, end: 20110101
  7. GEODON [Concomitant]
     Dosage: 40 MG, BID
     Route: 048
  8. VALTREX [Concomitant]
     Route: 048
  9. YAZ [Suspect]
     Indication: PREMENSTRUAL SYNDROME
  10. KLONOPIN [Concomitant]
     Indication: BIPOLAR DISORDER
     Dosage: UNK
     Route: 048
     Dates: start: 19990101, end: 20110101
  11. NEURONTIN [Concomitant]
     Indication: BIPOLAR DISORDER
     Dosage: UNK
     Route: 048
     Dates: start: 19990101, end: 20110101
  12. MOTRIN [Concomitant]
     Dosage: 800 MG, TID
     Route: 048
  13. CIPROFLOXACIN HCL [Concomitant]
     Dosage: 500 MG, BID
     Route: 048
  14. LEXAPRO [Concomitant]
     Dosage: 20 MG, QD

REACTIONS (4)
  - MENTAL DISORDER [None]
  - GALLBLADDER DISORDER [None]
  - CHOLELITHIASIS [None]
  - ABDOMINAL PAIN [None]
